FAERS Safety Report 4675599-0 (Version None)
Quarter: 2005Q2

REPORT INFORMATION
  Report Type: 
  Country: None (occurrence: None)
  Receive Date: 20050527
  Receipt Date: 20050422
  Transmission Date: 20051028
  Serious: Yes (Other)
  Sender: FDA-Public Use
  Company Number: US-BRISTOL-MYERS SQUIBB COMPANY-12943601

PATIENT
  Age: 12 Year
  Sex: Male
  Weight: 49 kg

DRUGS (3)
  1. ABILIFY [Suspect]
     Indication: AFFECTIVE DISORDER
     Dosage: 5 MG ON 01-APR-05; ON 21-APR-05 REDUCED TO 5 MG - 1/2 TABLET PER DAY
     Dates: start: 20050401
  2. STRATTERA [Concomitant]
  3. TRILEPTAL [Concomitant]

REACTIONS (3)
  - BLOOD PRESSURE ABNORMAL [None]
  - DIZZINESS POSTURAL [None]
  - HEART RATE INCREASED [None]
